FAERS Safety Report 18681905 (Version 1)
Quarter: 2020Q4

REPORT INFORMATION
  Report Type: Spontaneous
  Country: US (occurrence: US)
  Receive Date: 20201230
  Receipt Date: 20201230
  Transmission Date: 20210114
  Serious: Yes (Other)
  Sender: FDA-Public Use
  Company Number: US-SA-2020SA373597

PATIENT

DRUGS (1)
  1. DUPIXENT [Suspect]
     Active Substance: DUPILUMAB
     Indication: CYSTIC FIBROSIS

REACTIONS (6)
  - Cataract [Unknown]
  - Astigmatism [Unknown]
  - Product use in unapproved indication [Unknown]
  - Condition aggravated [Unknown]
  - Alopecia [Unknown]
  - Migraine [Unknown]

NARRATIVE: CASE EVENT DATE: 20201105
